FAERS Safety Report 12790926 (Version 2)
Quarter: 2016Q4

REPORT INFORMATION
  Report Type: Spontaneous
  Country: US (occurrence: US)
  Receive Date: 20160929
  Receipt Date: 20161024
  Transmission Date: 20170207
  Serious: Yes (Other)
  Sender: FDA-Public Use
  Company Number: US-JNJCP-30000356260

PATIENT
  Sex: Female
  Weight: 64 kg

DRUGS (1)
  1. NEUTROGENA ULTRA SHEER FACE AND BODY SUNSCREEN BROAD SPECTRUM SPF70 [Suspect]
     Active Substance: AVOBENZONE\HOMOSALATE\OCTISALATE\OCTOCRYLENE\OXYBENZONE
     Indication: PROPHYLAXIS
     Dosage: WITH APPLICATOR, AS NEEDED
     Route: 061

REACTIONS (1)
  - Basal cell carcinoma [Recovered/Resolved]
